FAERS Safety Report 20696203 (Version 2)
Quarter: 2022Q2

REPORT INFORMATION
  Report Type: Spontaneous
  Country: IN (occurrence: IN)
  Receive Date: 20220411
  Receipt Date: 20220421
  Transmission Date: 20220721
  Serious: Yes (Death, Other)
  Sender: FDA-Public Use
  Company Number: IN-PFIZER INC-2021283204

PATIENT
  Age: 52 Year
  Sex: Male

DRUGS (8)
  1. DACOMITINIB [Suspect]
     Active Substance: DACOMITINIB
     Indication: Non-small cell lung cancer metastatic
     Dosage: UNK
     Dates: start: 202102
  2. DACOMITINIB [Suspect]
     Active Substance: DACOMITINIB
     Indication: EGFR gene mutation
     Dosage: 30 MG, 1X/DAY
     Route: 048
     Dates: start: 20210312
  3. DACOMITINIB [Suspect]
     Active Substance: DACOMITINIB
     Dosage: 30 MG
     Route: 048
     Dates: start: 20210309
  4. DACOMITINIB [Suspect]
     Active Substance: DACOMITINIB
     Dosage: 30 MG, 1X/DAY
     Route: 048
     Dates: start: 20210317, end: 20211130
  5. ENOXAPARIN SODIUM [Concomitant]
     Active Substance: ENOXAPARIN SODIUM
     Dosage: 0.6 ML, 2X/DAY
  6. LEVEPIL [Concomitant]
     Dosage: 1 G, 2X/DAY
  7. CHOLECALCIFEROL [Concomitant]
     Active Substance: CHOLECALCIFEROL
     Dosage: 60000 IU, WEEKLY
  8. ASPIRIN [Concomitant]
     Active Substance: ASPIRIN
     Dosage: 75 MG

REACTIONS (11)
  - Death [Fatal]
  - Diabetes mellitus [Unknown]
  - Alanine aminotransferase increased [Unknown]
  - Haemoglobin decreased [Unknown]
  - White blood cell count decreased [Unknown]
  - Platelet count decreased [Unknown]
  - Blood bilirubin increased [Unknown]
  - Bilirubin conjugated increased [Unknown]
  - Pruritus [Unknown]
  - Hypertension [Unknown]
  - Aspiration pleural cavity [Unknown]

NARRATIVE: CASE EVENT DATE: 20210201
